FAERS Safety Report 5060096-3 (Version None)
Quarter: 2006Q3

REPORT INFORMATION
  Report Type: 
  Country: None (occurrence: None)
  Receive Date: 20060719
  Receipt Date: 20060706
  Transmission Date: 20061208
  Serious: Yes (Other)
  Sender: FDA-Public Use
  Company Number: S06-CAN-02628-01

PATIENT
  Age: 24 Year
  Sex: Female

DRUGS (4)
  1. CELEXA [Suspect]
     Dosage: 1600 MG ONCE PO
     Route: 048
  2. CELEXA [Suspect]
  3. SEROQUEL [Suspect]
     Dosage: 200 MG ONCE
  4. SEROQUEL [Suspect]

REACTIONS (3)
  - MULTIPLE DRUG OVERDOSE [None]
  - SUICIDE ATTEMPT [None]
  - TACHYCARDIA [None]
